FAERS Safety Report 19622181 (Version 2)
Quarter: 2021Q3

REPORT INFORMATION
  Report Type: Spontaneous
  Country: US (occurrence: US)
  Receive Date: 20210728
  Receipt Date: 20210823
  Transmission Date: 20211014
  Serious: No
  Sender: FDA-Public Use
  Company Number: US-LUPIN PHARMACEUTICALS INC.-2021-12676

PATIENT
  Age: 60 Year
  Sex: Female

DRUGS (1)
  1. BUPROPION. [Suspect]
     Active Substance: BUPROPION
     Indication: SLEEP INERTIA
     Dosage: 150 MILLIGRAM, QD, SUSTAINED RELEASE FORMULATION AT BEDTIME WAS GIVEN
     Route: 065

REACTIONS (1)
  - Myalgia [Recovered/Resolved]
